FAERS Safety Report 25691069 (Version 1)
Quarter: 2025Q3

REPORT INFORMATION
  Report Type: Report from Study
  Country: AR (occurrence: AR)
  Receive Date: 20250818
  Receipt Date: 20250818
  Transmission Date: 20251020
  Serious: Yes (Other)
  Sender: ELI LILLY AND COMPANY
  Company Number: AR-Merck Healthcare KGaA-2024003468

PATIENT
  Age: 52 Year
  Sex: Male

DRUGS (1)
  1. CETUXIMAB [Suspect]
     Active Substance: CETUXIMAB
     Indication: Colorectal cancer
     Dosage: 438 MG, 2/M (ONCE IN FOURTEEN DAYS)
     Route: 042
     Dates: start: 20230601

REACTIONS (2)
  - Rectal haemorrhage [Not Recovered/Not Resolved]
  - Off label use [Unknown]
